FAERS Safety Report 10060649 (Version 1)
Quarter: 2014Q2

REPORT INFORMATION
  Report Type: Spontaneous
  Country: KR (occurrence: KR)
  Receive Date: 20140404
  Receipt Date: 20140404
  Transmission Date: 20141212
  Serious: Yes (Death, Hospitalization, Other)
  Sender: FDA-Public Use
  Company Number: KR-ELI_LILLY_AND_COMPANY-KR201404000286

PATIENT
  Age: 75 Year
  Sex: Male

DRUGS (2)
  1. GEMCITABINE HYDROCHLORIDE [Suspect]
     Indication: PANCREATIC CARCINOMA
     Route: 065
  2. ERLOTINIB [Suspect]
     Indication: PANCREATIC CARCINOMA
     Route: 065

REACTIONS (7)
  - Death [Fatal]
  - Pneumatosis intestinalis [Recovered/Resolved]
  - Ascites [Unknown]
  - General physical health deterioration [Unknown]
  - Haematochezia [Unknown]
  - Decreased appetite [Unknown]
  - Asthenia [Unknown]
